FAERS Safety Report 16426566 (Version 2)
Quarter: 2019Q2

REPORT INFORMATION
  Report Type: Spontaneous
  Country: JP (occurrence: JP)
  Receive Date: 20190613
  Receipt Date: 20190628
  Transmission Date: 20190711
  Serious: Yes (Other)
  Sender: FDA-Public Use
  Company Number: JP-BIODELIVERY SCIENCES INTERNATIONAL-2019BDSI0493

PATIENT
  Age: 69 Year
  Sex: Male

DRUGS (2)
  1. NALDEMEDINE [Suspect]
     Active Substance: NALDEMEDINE
     Indication: CONSTIPATION
     Route: 048
     Dates: start: 20190509, end: 20190515
  2. CEFOPERAZONE SODIUM/SULBACTAM SODIUM [Suspect]
     Active Substance: CEFOPERAZONE SODIUM\SULBACTAM SODIUM
     Indication: CHOLANGITIS
     Route: 042
     Dates: start: 20190508, end: 20190512

REACTIONS (2)
  - Anal incontinence [Unknown]
  - Liver disorder [Not Recovered/Not Resolved]

NARRATIVE: CASE EVENT DATE: 20190515
